FAERS Safety Report 6940058-9 (Version None)
Quarter: 2010Q3

REPORT INFORMATION
  Report Type: 
  Country: None (occurrence: None)
  Receive Date: 20100825
  Receipt Date: 20100817
  Transmission Date: 20110219
  Serious: Yes (Other)
  Sender: FDA-Public Use
  Company Number: GB-KINGPHARMUSA00001-K201001050

PATIENT
  Age: 5 Year
  Sex: Female

DRUGS (1)
  1. EPIPEN JR. [Suspect]

REACTIONS (6)
  - ACCIDENTAL EXPOSURE [None]
  - EMOTIONAL DISTRESS [None]
  - HYPERTENSION [None]
  - INJECTION SITE HAEMATOMA [None]
  - SKELETAL INJURY [None]
  - TACHYCARDIA [None]
